FAERS Safety Report 9009194 (Version 2)
Quarter: 2013Q1

REPORT INFORMATION
  Report Type: Report from Study
  Country: CA (occurrence: CA)
  Receive Date: 20130111
  Receipt Date: 20130208
  Transmission Date: 20140127
  Serious: Yes (Congenital Anomaly, Other)
  Sender: FDA-Public Use
  Company Number: CA-ABBOTT-13P-028-1035084-00

PATIENT
  Sex: Female

DRUGS (2)
  1. HUMIRA [Suspect]
     Indication: MATERNAL EXPOSURE TIMING UNSPECIFIED
     Route: 064
  2. HUMIRA [Suspect]
     Route: 058
     Dates: start: 201209

REACTIONS (3)
  - Abortion induced [Fatal]
  - Trisomy 18 [Unknown]
  - Ultrasound antenatal screen abnormal [Unknown]
